FAERS Safety Report 26126016 (Version 1)
Quarter: 2025Q4

REPORT INFORMATION
  Report Type: Spontaneous
  Country: GB (occurrence: GB)
  Receive Date: 20251205
  Receipt Date: 20251205
  Transmission Date: 20260117
  Serious: Yes (Life-Threatening, Hospitalization, Other)
  Sender: B. BRAUN MEDICAL INC.
  Company Number: None

PATIENT
  Age: 32 Year
  Sex: Female

DRUGS (13)
  1. PROPOFOL [Suspect]
     Active Substance: PROPOFOL
     Indication: Endotracheal intubation
  2. PROPOFOL [Suspect]
     Active Substance: PROPOFOL
  3. CEFUROXIME [Suspect]
     Active Substance: CEFUROXIME
     Indication: Product used for unknown indication
  4. BUPIVACAINE [Suspect]
     Active Substance: BUPIVACAINE
     Indication: Spinal anaesthesia
  5. SERTRALINE [Suspect]
     Active Substance: SERTRALINE HYDROCHLORIDE
     Indication: Depression
  6. METFORMIN [Suspect]
     Active Substance: METFORMIN HYDROCHLORIDE
     Indication: Gestational diabetes
  7. DIAMORPHINE [Suspect]
     Active Substance: DIAMORPHINE
     Indication: Spinal anaesthesia
     Dosage: 300 MICROGRAM
  8. HYDROCORTISONE [Suspect]
     Active Substance: HYDROCORTISONE
     Indication: Anaphylactic reaction
  9. EPINEPHRINE [Suspect]
     Active Substance: EPINEPHRINE
     Indication: Anaphylactic reaction
  10. INSULIN HUMAN [Suspect]
     Active Substance: INSULIN HUMAN
     Indication: Gestational diabetes
     Dosage: 4 INTERNATIONAL UNIT
  11. PHENYLEPHRINE [Suspect]
     Active Substance: PHENYLEPHRINE
     Indication: Blood pressure measurement
  12. SUCCINYLCHOLINE CHLORIDE [Suspect]
     Active Substance: SUCCINYLCHOLINE CHLORIDE
     Indication: Endotracheal intubation
  13. ALFENTANIL [Suspect]
     Active Substance: ALFENTANIL

REACTIONS (10)
  - Serotonin syndrome [Recovered/Resolved]
  - Tachyarrhythmia [Recovered/Resolved]
  - Bradyarrhythmia [Recovered/Resolved]
  - Metabolic acidosis [Recovered/Resolved]
  - Respiratory acidosis [Recovered/Resolved]
  - Maternal exposure during pregnancy [Recovered/Resolved]
  - Maternal exposure during delivery [Recovered/Resolved]
  - Cardiac arrest [Unknown]
  - Seizure [Recovered/Resolved]
  - Normal newborn [Recovered/Resolved]
